FAERS Safety Report 13264659 (Version 1)
Quarter: 2017Q1

REPORT INFORMATION
  Report Type: Spontaneous
  Country: IN (occurrence: IN)
  Receive Date: 20170223
  Receipt Date: 20170223
  Transmission Date: 20170428
  Serious: Yes (Other)
  Sender: FDA-Public Use
  Company Number: IN-PFIZER INC-2017068594

PATIENT
  Age: 49 Year
  Sex: Female

DRUGS (3)
  1. LETROZOLE. [Concomitant]
     Active Substance: LETROZOLE
     Dosage: 2.5 MG, UNK
     Dates: start: 20170122
  2. PALBACE [Suspect]
     Active Substance: PALBOCICLIB
     Indication: BREAST CANCER METASTATIC
     Dosage: 125 MG, ONCE A DAY
     Route: 048
     Dates: start: 20170122
  3. PALBACE [Suspect]
     Active Substance: PALBOCICLIB
     Dosage: 100MG ONCE A DAY
     Route: 048
     Dates: start: 20170128

REACTIONS (3)
  - Loss of consciousness [Unknown]
  - Palpitations [Unknown]
  - Pyrexia [Unknown]

NARRATIVE: CASE EVENT DATE: 20170212
